FAERS Safety Report 8574701-8 (Version None)
Quarter: 2012Q3

REPORT INFORMATION
  Report Type: 
  Country: None (occurrence: None)
  Receive Date: 20120807
  Receipt Date: 20120726
  Transmission Date: 20120928
  Serious: Yes (Life-Threatening, Hospitalization, Other)
  Sender: FDA-Public Use
  Company Number: IT-BIOGENIDEC-2012BI011458

PATIENT
  Age: 46 Year
  Sex: Female

DRUGS (3)
  1. AMANTADINE HCL [Concomitant]
  2. TYSABRI [Suspect]
     Indication: MULTIPLE SCLEROSIS
     Route: 042
     Dates: start: 20100913, end: 20120309
  3. GABAPENTIN [Concomitant]

REACTIONS (4)
  - PROGRESSIVE MULTIFOCAL LEUKOENCEPHALOPATHY [None]
  - ACUTE RESPIRATORY FAILURE [None]
  - DYSPHAGIA [None]
  - IMMUNE RECONSTITUTION SYNDROME [None]
